FAERS Safety Report 9452555 (Version 1)
Quarter: 2013Q3

REPORT INFORMATION
  Report Type: Spontaneous
  Country: IT (occurrence: IT)
  Receive Date: 20130812
  Receipt Date: 20130812
  Transmission Date: 20140515
  Serious: Yes (Other)
  Sender: FDA-Public Use
  Company Number: IT-ACCORD-018936

PATIENT
  Age: 55 Year
  Sex: Female

DRUGS (7)
  1. PACLITAXEL [Suspect]
     Indication: CERVIX CARCINOMA
     Route: 042
     Dates: start: 20130718, end: 20130718
  2. ALOXI [Concomitant]
     Route: 041
  3. EMEND [Concomitant]
     Route: 048
  4. ZANTAC [Concomitant]
     Route: 042
  5. EPIRUBICIN HYDROCHLORIDE [Concomitant]
     Route: 042
  6. SOLDESAM [Concomitant]
  7. TRIMETON [Concomitant]

REACTIONS (4)
  - Suffocation feeling [Recovered/Resolved]
  - Erythema [Recovered/Resolved]
  - Chest discomfort [Recovered/Resolved]
  - Off label use [Unknown]
